FAERS Safety Report 9647635 (Version 1)
Quarter: 2013Q4

REPORT INFORMATION
  Report Type: Spontaneous
  Country: US (occurrence: US)
  Receive Date: 20131028
  Receipt Date: 20131028
  Transmission Date: 20140711
  Serious: No
  Sender: FDA-Public Use
  Company Number: US-009507513-1310USA011098

PATIENT
  Age: 85 Year
  Sex: Male

DRUGS (5)
  1. DORZOLAMIDE HYDROCHLORIDE (+) TIMOLOL MALEATE [Suspect]
     Indication: GLAUCOMA
     Dosage: UNK
     Route: 031
     Dates: end: 201308
  2. COSOPT PF [Suspect]
     Indication: GLAUCOMA
     Dosage: UNK
     Route: 031
     Dates: start: 201308
  3. ALPHAGAN [Concomitant]
  4. LUMIGAN [Concomitant]
  5. BROMFENAC SODIUM [Concomitant]

REACTIONS (1)
  - Eye irritation [Recovering/Resolving]
